FAERS Safety Report 9931064 (Version 1)
Quarter: 2014Q1

REPORT INFORMATION
  Report Type: Report from Study
  Country: BR (occurrence: BR)
  Receive Date: 20140227
  Receipt Date: 20140227
  Transmission Date: 20141002
  Serious: Yes (Other)
  Sender: FDA-Public Use
  Company Number: PHHY2014BR022877

PATIENT
  Sex: Female
  Weight: 59 kg

DRUGS (4)
  1. TRILEPTAL [Suspect]
     Indication: CONVULSION
     Dosage: 1 DF, IN MORNING
     Route: 048
     Dates: start: 2009
  2. CLOPIN//CLOPIDOGREL BESYLATE [Concomitant]
     Indication: THROMBOSIS
     Dosage: 75 MG, UNK
     Dates: start: 2009
  3. SINVASCOR [Concomitant]
     Dosage: 20 MG, UNK
  4. LEXOTAN [Concomitant]
     Indication: INSOMNIA
     Dosage: UNK UKN, UNK

REACTIONS (6)
  - Bone fissure [Unknown]
  - Upper limb fracture [Unknown]
  - Spinal fracture [Unknown]
  - Blood pressure increased [Recovering/Resolving]
  - Fall [Unknown]
  - Nervousness [Unknown]
